FAERS Safety Report 23586947 (Version 1)
Quarter: 2024Q1

REPORT INFORMATION
  Report Type: Spontaneous
  Country: US (occurrence: None)
  Receive Date: 20240301
  Receipt Date: 20240301
  Transmission Date: 20240409
  Serious: Yes (Disabling, Other)
  Sender: FDA-Public Use
  Company Number: None

PATIENT
  Age: 34 Year
  Sex: Female
  Weight: 49.44 kg

DRUGS (1)
  1. MIRENA [Suspect]
     Active Substance: LEVONORGESTREL

REACTIONS (9)
  - Hypoaesthesia [None]
  - Hypoaesthesia [None]
  - Muscular weakness [None]
  - Muscular weakness [None]
  - Paraesthesia [None]
  - Muscle spasms [None]
  - Muscle twitching [None]
  - Neck pain [None]
  - Panic attack [None]

NARRATIVE: CASE EVENT DATE: 20210920
